FAERS Safety Report 19809206 (Version 1)
Quarter: 2021Q3

REPORT INFORMATION
  Report Type: Spontaneous
  Country: SG (occurrence: SG)
  Receive Date: 20210908
  Receipt Date: 20210908
  Transmission Date: 20211014
  Serious: Yes (Hospitalization, Other)
  Sender: FDA-Public Use
  Company Number: SG-TAKEDA-2021TUS054147

PATIENT
  Age: 6 Month
  Sex: Male

DRUGS (4)
  1. EMICIZUMAB. [Concomitant]
     Active Substance: EMICIZUMAB
     Indication: PROPHYLAXIS
     Dosage: 3 MILLIGRAM/KILOGRAM, 1/WEEK
     Route: 065
  2. PHENOBARBITONE [Concomitant]
     Active Substance: PHENOBARBITAL
     Dosage: UNK
     Route: 065
  3. COAGULATION FACTOR VIII (PLASMA DERIVED) [Suspect]
     Active Substance: ANTIHEMOPHILIC FACTOR HUMAN
     Indication: FACTOR VIII DEFICIENCY
     Dosage: 50 INTERNATIONAL UNIT/KILOGRAM, QD
     Route: 065
  4. EMICIZUMAB. [Concomitant]
     Active Substance: EMICIZUMAB
     Dosage: 3 MILLIGRAM/KILOGRAM, Q2WEEKS
     Route: 065

REACTIONS (4)
  - Anti factor VIII antibody positive [Recovered/Resolved]
  - Subdural haemorrhage [Recovered/Resolved]
  - Haematoma [Recovered/Resolved]
  - Underdose [Recovered/Resolved]
